FAERS Safety Report 4692859-8 (Version None)
Quarter: 2005Q2

REPORT INFORMATION
  Report Type: 
  Country: None (occurrence: None)
  Receive Date: 20050617
  Receipt Date: 20050608
  Transmission Date: 20051028
  Serious: Yes (Hospitalization)
  Sender: FDA-Public Use
  Company Number: JP-BRISTOL-MYERS SQUIBB COMPANY-12998175

PATIENT
  Age: 57 Year
  Sex: Male

DRUGS (2)
  1. BRIPLATIN [Suspect]
     Indication: METASTASES TO LIVER
     Route: 025
  2. FLUOROURACIL [Concomitant]
     Route: 042

REACTIONS (1)
  - CEREBRAL INFARCTION [None]
